FAERS Safety Report 13346840 (Version 3)
Quarter: 2017Q4

REPORT INFORMATION
  Report Type: Spontaneous
  Country: TR (occurrence: TR)
  Receive Date: 20170317
  Receipt Date: 20171019
  Transmission Date: 20180320
  Serious: Yes (Death, Life-Threatening, Hospitalization, Other)
  Sender: FDA-Public Use
  Company Number: TR-PFIZER INC-2017110948

PATIENT
  Age: 18 Year
  Sex: Female
  Weight: 56 kg

DRUGS (1)
  1. AMLODIPINE BESILATE [Suspect]
     Active Substance: AMLODIPINE BESYLATE
     Indication: SUICIDE ATTEMPT
     Dosage: 120 MG, SINGLE

REACTIONS (11)
  - Hypotension [Unknown]
  - Cardiac arrest [Fatal]
  - Sinus tachycardia [Unknown]
  - Myocardial depression [Unknown]
  - Suicide attempt [Unknown]
  - Sinus bradycardia [Unknown]
  - Metabolic acidosis [Unknown]
  - Intentional overdose [Fatal]
  - Hypoxia [Unknown]
  - Lactic acidosis [Unknown]
  - Pulmonary oedema [Unknown]
